FAERS Safety Report 6529500-5 (Version None)
Quarter: 2010Q1

REPORT INFORMATION
  Report Type: 
  Country: None (occurrence: None)
  Receive Date: 20100107
  Receipt Date: 20100104
  Transmission Date: 20100710
  Serious: Yes (Hospitalization)
  Sender: FDA-Public Use
  Company Number: PHHO2010US00461

PATIENT
  Age: 66 Year
  Sex: Female

DRUGS (9)
  1. DIOVAN [Suspect]
     Dosage: UNK
  2. DIOVAN [Suspect]
     Dosage: 320 MG DAILY
  3. DASATINIB [Suspect]
     Indication: CHRONIC MYELOID LEUKAEMIA
     Dosage: 100 MG, QD
     Route: 048
     Dates: start: 20090109, end: 20001123
  4. DASATINIB [Suspect]
     Dosage: 70 MG, QD
     Route: 048
     Dates: start: 20091215
  5. METFORMIN HCL [Suspect]
  6. ACTOS [Concomitant]
  7. LORAZEPAM [Concomitant]
  8. PAXIL [Concomitant]
  9. PRAVASTATIN SODIUM [Concomitant]

REACTIONS (7)
  - BLOOD GLUCOSE INCREASED [None]
  - FATIGUE [None]
  - HEADACHE [None]
  - HYPERTENSION [None]
  - NAUSEA [None]
  - PLEURAL EFFUSION [None]
  - WEIGHT DECREASED [None]
